FAERS Safety Report 10244479 (Version 2)
Quarter: 2014Q2

REPORT INFORMATION
  Report Type: Spontaneous
  Country: JP (occurrence: JP)
  Receive Date: 20140618
  Receipt Date: 20140630
  Transmission Date: 20141212
  Serious: Yes (Hospitalization, Other)
  Sender: FDA-Public Use
  Company Number: PHHY2014JP074452

PATIENT
  Age: 0 Day
  Sex: Male
  Weight: 2.61 kg

DRUGS (4)
  1. NEORAL [Suspect]
     Dosage: MATERNAL DOSE: 50 MG DAILY
     Route: 064
  2. NEORAL [Suspect]
     Dosage: MATERNAL DOSE: 25 MG DAILY
     Route: 064
  3. PREDNISOLONE [Suspect]
     Dosage: MATERNAL DOSE: 30 MG/DAY
     Route: 064
  4. REMICADE [Suspect]
     Route: 064

REACTIONS (4)
  - Sepsis neonatal [Recovered/Resolved]
  - Foetal distress syndrome [Recovered/Resolved]
  - Bacterial infection [Recovered/Resolved]
  - Foetal exposure during pregnancy [Unknown]
